FAERS Safety Report 4450345-4 (Version None)
Quarter: 2004Q3

REPORT INFORMATION
  Report Type: 
  Country: None (occurrence: None)
  Receive Date: 20040915
  Receipt Date: 20040902
  Transmission Date: 20050211
  Serious: Yes (Other)
  Sender: FDA-Public Use
  Company Number: 2004062184

PATIENT
  Age: 9 Year
  Sex: Male
  Weight: 31.7518 kg

DRUGS (3)
  1. BENADRYL [Suspect]
     Indication: INSOMNIA
     Dosage: ^1 A NIGHT FOR 2 WEEKS^, ORAL
     Route: 048
  2. METHYLPHENIDATE HCL [Concomitant]
  3. ATOMOXETINE HYDROCHLORIDE (ATOMOXETINE HYDROCHLORIDE) [Concomitant]

REACTIONS (1)
  - MEDICATION ERROR [None]
